FAERS Safety Report 10228870 (Version 1)
Quarter: 2014Q2

REPORT INFORMATION
  Report Type: Spontaneous
  Country: ES (occurrence: ES)
  Receive Date: 20140610
  Receipt Date: 20140610
  Transmission Date: 20141212
  Serious: Yes (Other)
  Sender: FDA-Public Use
  Company Number: PHHY2014ES069343

PATIENT
  Sex: Male

DRUGS (1)
  1. PARACETAMOL [Suspect]

REACTIONS (4)
  - Type IV hypersensitivity reaction [Unknown]
  - Drug eruption [Unknown]
  - Genital rash [Unknown]
  - Penile plaque [Unknown]
